FAERS Safety Report 23090942 (Version 1)
Quarter: 2023Q4

REPORT INFORMATION
  Report Type: Spontaneous
  Country: US (occurrence: US)
  Receive Date: 20231020
  Receipt Date: 20231020
  Transmission Date: 20240110
  Serious: Yes (Other)
  Sender: FDA-Public Use
  Company Number: US-PROCTER_AND_GAMBLE-GS23112033

PATIENT
  Sex: Male

DRUGS (1)
  1. CREST 3D WHITE BRILLIANCE CHARCOAL [Suspect]
     Active Substance: SODIUM FLUORIDE
     Indication: Dental disorder prophylaxis
     Dosage: UNK
     Route: 002
     Dates: start: 2023, end: 2023

REACTIONS (7)
  - Tooth loss [Unknown]
  - Loose tooth [Unknown]
  - Tooth injury [Unknown]
  - Tooth discolouration [Recovering/Resolving]
  - Gingival discolouration [Recovering/Resolving]
  - Toothache [Unknown]
  - Gingival disorder [Unknown]

NARRATIVE: CASE EVENT DATE: 20230101
